FAERS Safety Report 6048376-6 (Version None)
Quarter: 2009Q1

REPORT INFORMATION
  Report Type: 
  Country: None (occurrence: None)
  Receive Date: 20090123
  Receipt Date: 20090119
  Transmission Date: 20090719
  Serious: Yes (Death, Hospitalization, Other)
  Sender: FDA-Public Use
  Company Number: FR-BRISTOL-MYERS SQUIBB COMPANY-14476006

PATIENT
  Age: 71 Year
  Sex: Male

DRUGS (8)
  1. ELISOR TABS [Interacting]
  2. LEVOTHYROX [Interacting]
     Indication: HYPOTHYROIDISM
     Dates: start: 20080801
  3. CORDARONE [Interacting]
     Dosage: DOSE INCREASED FROM 1/D TO 2/D 5 DAYS OVER 7 DAYS.
  4. PREVISCAN [Suspect]
     Dosage: 1/2 CP/D EVERY OTHER DAY ALTERNATING WITH 3/4 CP/D.
  5. KARDEGIC [Suspect]
  6. TRIATEC [Concomitant]
  7. CARDENSIEL [Concomitant]
  8. LASILIX [Concomitant]

REACTIONS (4)
  - CEREBRAL HAEMORRHAGE [None]
  - DRUG INTERACTION [None]
  - INTERNATIONAL NORMALISED RATIO INCREASED [None]
  - RENAL FAILURE [None]
